FAERS Safety Report 16814544 (Version 1)
Quarter: 2019Q4

REPORT INFORMATION
  Report Type: Spontaneous
  Country: US (occurrence: US)
  Receive Date: 20190916
  Receipt Date: 20190916
  Transmission Date: 20200122
  Serious: Yes (Other)
  Sender: FDA-Public Use
  Company Number: None

PATIENT
  Age: 54 Year
  Sex: Female
  Weight: 78.3 kg

DRUGS (7)
  1. SAXENDA [Suspect]
     Active Substance: LIRAGLUTIDE
     Indication: OBESITY
  2. VITAMIN D [Concomitant]
     Active Substance: VITAMIN D NOS
  3. RED YEAST RICE [Concomitant]
     Active Substance: DIETARY SUPPLEMENT
  4. FISH OIL [Concomitant]
     Active Substance: FISH OIL
  5. UBIQUINOL [Concomitant]
     Active Substance: UBIQUINOL
  6. MULTIVITAMIN [Concomitant]
     Active Substance: VITAMINS
  7. XYZAL [Concomitant]
     Active Substance: LEVOCETIRIZINE DIHYDROCHLORIDE

REACTIONS (1)
  - Thyroid mass [None]

NARRATIVE: CASE EVENT DATE: 20190813
